FAERS Safety Report 15463105 (Version 3)
Quarter: 2018Q4

REPORT INFORMATION
  Report Type: Spontaneous
  Country: CA (occurrence: CA)
  Receive Date: 20181004
  Receipt Date: 20181016
  Transmission Date: 20190204
  Serious: Yes (Other)
  Sender: FDA-Public Use
  Company Number: CA-BAXTER-2018BAX025002

PATIENT
  Age: 28 Year
  Sex: Female

DRUGS (3)
  1. EPIMORPH [Suspect]
     Active Substance: MORPHINE SULFATE
     Indication: SPINAL ANAESTHESIA
     Dosage: ROUTINE ADDITIVES TO ALL SPINALS
     Route: 037
     Dates: start: 20180925
  2. BUPIVACAINE IN 8.25% DEXTROSE INJECTION USP [Suspect]
     Active Substance: BUPIVACAINE\DEXTROSE
     Indication: SPINAL ANAESTHESIA
     Dosage: 2 ML AMPOULE, SUBARACHNOID ROUTE
     Route: 037
     Dates: start: 20180925
  3. FENTANYL. [Suspect]
     Active Substance: FENTANYL
     Indication: SPINAL ANAESTHESIA
     Dosage: ROUTINE ADDITIVES TO ALL SPINALS
     Route: 037
     Dates: start: 20180925

REACTIONS (2)
  - Drug effect decreased [Unknown]
  - Exposure during pregnancy [Unknown]

NARRATIVE: CASE EVENT DATE: 20180925
